APPROVED DRUG PRODUCT: FEXOFENADINE HYDROCHLORIDE
Active Ingredient: FEXOFENADINE HYDROCHLORIDE
Strength: 30MG/5ML
Dosage Form/Route: SUSPENSION;ORAL
Application: A213466 | Product #001
Applicant: AUROBINDO PHARMA LTD
Approved: May 23, 2023 | RLD: No | RS: No | Type: OTC